FAERS Safety Report 6068152-8 (Version None)
Quarter: 2009Q1

REPORT INFORMATION
  Report Type: 
  Country: None (occurrence: None)
  Receive Date: 20090206
  Receipt Date: 20090126
  Transmission Date: 20090719
  Serious: Yes (Hospitalization)
  Sender: FDA-Public Use
  Company Number: SE-PFIZER INC-2009162633

PATIENT

DRUGS (10)
  1. SPIRONOLACTONE [Suspect]
     Indication: HYPERTENSION
     Dosage: 25 MG, 1X/DAY
     Route: 048
     Dates: end: 20081029
  2. WARFARIN SODIUM [Suspect]
     Indication: ATRIAL FIBRILLATION
     Dosage: 2.5 MG, 1X/DAY
     Route: 048
  3. ENALAPRIL [Suspect]
     Indication: CARDIAC FAILURE
     Dosage: 10 MG, 1X/DAY
     Route: 048
  4. XATRAL OD [Concomitant]
  5. FOLAXIN [Concomitant]
     Dosage: 5 MG, UNK
  6. KENACORT-T [Concomitant]
  7. FURIX [Concomitant]
     Dosage: 40 MG, UNK
  8. GLIBENCLAMIDE [Concomitant]
     Dosage: 3.5 MG, UNK
  9. SELOKEN ZOC [Concomitant]
     Dosage: 100 MG, UNK
  10. CYANOCOBALAMIN [Concomitant]
     Dosage: 1 MG, UNK

REACTIONS (2)
  - HYPERKALAEMIA [None]
  - INTERNATIONAL NORMALISED RATIO INCREASED [None]
